FAERS Safety Report 4319321-6 (Version None)
Quarter: 2004Q1

REPORT INFORMATION
  Report Type: 
  Country: None (occurrence: None)
  Receive Date: 20040318
  Receipt Date: 20040318
  Transmission Date: 20041129
  Serious: No
  Sender: FDA-Public Use
  Company Number: None

PATIENT
  Sex: Male
  Weight: 89 kg

DRUGS (8)
  1. SIMVASTATIN [Suspect]
     Indication: HYPERLIPIDAEMIA
     Dosage: 10 MG QHS ORAL
     Route: 048
     Dates: start: 20020929, end: 20030107
  2. SIMVASTATIN [Suspect]
     Indication: HYPERLIPIDAEMIA
     Dosage: 10 MG QHS ORAL
     Route: 048
     Dates: start: 20040101, end: 20040309
  3. GABAPENTIN [Concomitant]
  4. AGGRENOX [Concomitant]
  5. INSULIN ULTRALENT [Concomitant]
  6. REGULAR INSULIN [Concomitant]
  7. METOPROLOL TARTRATE [Concomitant]
  8. QUININE SULFATE [Concomitant]

REACTIONS (2)
  - BLOOD CREATINE PHOSPHOKINASE INCREASED [None]
  - MYALGIA [None]
